FAERS Safety Report 9486085 (Version 2)
Quarter: 2014Q1

REPORT INFORMATION
  Report Type: Spontaneous
  Country: US (occurrence: US)
  Receive Date: 20130829
  Receipt Date: 20140213
  Transmission Date: 20141002
  Serious: Yes (Hospitalization)
  Sender: FDA-Public Use
  Company Number: 2013SP002432

PATIENT
  Age: 30 Year
  Sex: Female
  Weight: 88 kg

DRUGS (6)
  1. LATUDA [Suspect]
     Indication: BIPOLAR II DISORDER
     Route: 048
     Dates: start: 20130813, end: 20130816
  2. LATUDA [Suspect]
     Indication: BIPOLAR II DISORDER
     Route: 048
     Dates: start: 20130724, end: 20130807
  3. PRILOSEC [Concomitant]
  4. FOLIC ACID [Concomitant]
     Route: 048
  5. LEVOTHYROXINE [Concomitant]
     Route: 048
  6. CARAFATE [Concomitant]
     Route: 048

REACTIONS (2)
  - Hepatic enzyme increased [Recovered/Resolved]
  - Gastrointestinal disorder [Recovered/Resolved]
